FAERS Safety Report 15851844 (Version 1)
Quarter: 2019Q1

REPORT INFORMATION
  Report Type: Report from Study
  Country: FR (occurrence: FR)
  Receive Date: 20190122
  Receipt Date: 20190122
  Transmission Date: 20190417
  Serious: Yes (Other)
  Sender: FDA-Public Use
  Company Number: FR-VELOXIS PHARMACEUTICALS, INC.-2018VELFR1321

PATIENT
  Age: 58 Year
  Sex: Female
  Weight: 68.2 kg

DRUGS (18)
  1. EZETROL [Concomitant]
     Active Substance: EZETIMIBE
     Indication: DYSLIPIDAEMIA
     Dosage: 10 MG, QD
     Route: 065
     Dates: start: 20181005
  2. ATENOLOL. [Concomitant]
     Active Substance: ATENOLOL
     Indication: HYPERTENSION
     Dosage: 50 MG, QD
     Route: 065
     Dates: start: 20180513
  3. ENVARSUS XR [Suspect]
     Active Substance: TACROLIMUS
     Indication: PROPHYLAXIS AGAINST TRANSPLANT REJECTION
     Dosage: 8 MG, QD
     Route: 048
     Dates: start: 20181006, end: 20190110
  4. ADOPORT [Concomitant]
     Active Substance: TACROLIMUS
     Dosage: 14 MG, QD
     Route: 065
     Dates: start: 20180519, end: 20180525
  5. ADOPORT [Concomitant]
     Active Substance: TACROLIMUS
     Dosage: 12 MG, QD
     Route: 065
     Dates: start: 20180909, end: 20181005
  6. BACTRIM DS [Concomitant]
     Active Substance: SULFAMETHOXAZOLE\TRIMETHOPRIM
     Indication: ANTIFUNGAL PROPHYLAXIS
     Dosage: 1 DF, QD
     Route: 065
     Dates: start: 20180513, end: 20181120
  7. ARANESP [Concomitant]
     Active Substance: DARBEPOETIN ALFA
     Indication: ANAEMIA
     Dosage: 20 ?G, EVERY 14 DAYS
     Route: 065
     Dates: start: 20181022
  8. LERCANIDIPINE [Concomitant]
     Active Substance: LERCANIDIPINE
     Indication: HYPERTENSION
     Dosage: 20 MG, QD
     Route: 065
  9. ADOPORT [Concomitant]
     Active Substance: TACROLIMUS
     Dosage: 11 MG, QD
     Route: 065
     Dates: start: 20180514, end: 20180514
  10. ADOPORT [Concomitant]
     Active Substance: TACROLIMUS
     Dosage: 13 MG, QD
     Route: 065
     Dates: start: 20180704, end: 20180908
  11. ENVARSUS XR [Suspect]
     Active Substance: TACROLIMUS
     Dosage: 7 MG, QD
     Route: 048
     Dates: start: 20190111
  12. ADOPORT [Concomitant]
     Active Substance: TACROLIMUS
     Dosage: 10 MG, QD
     Route: 065
     Dates: start: 20180515, end: 20180516
  13. ADOPORT [Concomitant]
     Active Substance: TACROLIMUS
     Dosage: 12 MG, QD
     Route: 065
     Dates: start: 20180526, end: 20180703
  14. CELLCEPT [Concomitant]
     Active Substance: MYCOPHENOLATE MOFETIL\MYCOPHENOLATE MOFETIL HYDROCHLORIDE
     Indication: RENAL TRANSPLANT
     Dosage: 1000 MG, QD
     Route: 065
     Dates: start: 20181005
  15. ADOPORT [Concomitant]
     Active Substance: TACROLIMUS
     Dosage: 11 MG, QD
     Route: 065
     Dates: start: 20180517, end: 20180517
  16. ADOPORT [Concomitant]
     Active Substance: TACROLIMUS
     Dosage: 13 MG, QD
     Route: 065
     Dates: start: 20180518, end: 20180518
  17. TARDYFERON [Concomitant]
     Active Substance: FERROUS SULFATE
     Indication: ANAEMIA
     Dosage: 80 MG, BID
     Route: 065
     Dates: start: 20180724
  18. ADOPORT [Concomitant]
     Active Substance: TACROLIMUS
     Indication: RENAL TRANSPLANT
     Dosage: 12 MG, QD
     Route: 065
     Dates: start: 20180513, end: 20180513

REACTIONS (11)
  - Renal graft infection [Recovering/Resolving]
  - Myalgia [Not Recovered/Not Resolved]
  - Vision blurred [Recovered/Resolved]
  - Gingival hypertrophy [Recovered/Resolved]
  - Escherichia pyelonephritis [Recovering/Resolving]
  - Insomnia [Recovered/Resolved]
  - Tinnitus [Recovered/Resolved]
  - Dysaesthesia [Recovered/Resolved]
  - Paraesthesia [Recovered/Resolved]
  - Headache [Recovered/Resolved]
  - Arthralgia [Not Recovered/Not Resolved]

NARRATIVE: CASE EVENT DATE: 20180703
